FAERS Safety Report 24636977 (Version 1)
Quarter: 2024Q4

REPORT INFORMATION
  Report Type: Spontaneous
  Country: PL (occurrence: PL)
  Receive Date: 20241119
  Receipt Date: 20241119
  Transmission Date: 20250115
  Serious: Yes (Hospitalization, Other)
  Sender: OXFORD PHARMACEUTICALS, LLC
  Company Number: PL-Oxford Pharmaceuticals, LLC-2165344

PATIENT
  Age: 41 Year
  Sex: Male

DRUGS (5)
  1. SERTRALINE HYDROCHLORIDE [Suspect]
     Active Substance: SERTRALINE HYDROCHLORIDE
     Indication: Product used for unknown indication
  2. OXYCODONE [Suspect]
     Active Substance: OXYCODONE
  3. ZOLEDRONIC ACID [Suspect]
     Active Substance: ZOLEDRONIC ACID
  4. KETOPROFEN [Suspect]
     Active Substance: KETOPROFEN
  5. METAMIZOLE [Suspect]
     Active Substance: METAMIZOLE

REACTIONS (4)
  - Psychomotor hyperactivity [Unknown]
  - Coma [Unknown]
  - Ataxia [Unknown]
  - Drug interaction [Unknown]
